FAERS Safety Report 5728366-0 (Version None)
Quarter: 2008Q2

REPORT INFORMATION
  Report Type: 
  Country: None (occurrence: None)
  Receive Date: 20080502
  Receipt Date: 20080502
  Transmission Date: 20081010
  Serious: Yes (Other)
  Sender: FDA-Public Use
  Company Number: None

PATIENT
  Age: 36 Year
  Sex: Female
  Weight: 101.6057 kg

DRUGS (1)
  1. YAZ [Suspect]
     Indication: ACNE CYSTIC
     Dosage: ONE PILL A DAY ONCE DAILY PO
     Route: 048
     Dates: start: 20070930, end: 20071030

REACTIONS (7)
  - ABASIA [None]
  - CHEST PAIN [None]
  - MUSCLE SPASMS [None]
  - MUSCLE TWITCHING [None]
  - MYALGIA [None]
  - PAIN [None]
  - SLEEP DISORDER [None]
